FAERS Safety Report 7329356-7 (Version None)
Quarter: 2011Q1

REPORT INFORMATION
  Report Type: 
  Country: None (occurrence: None)
  Receive Date: 20110303
  Receipt Date: 20110221
  Transmission Date: 20110831
  Serious: Yes (Life-Threatening, Hospitalization)
  Sender: FDA-Public Use
  Company Number: JP-MERCK-1101USA03583

PATIENT
  Age: 41 Year
  Sex: Female
  Weight: 61 kg

DRUGS (15)
  1. ASPIRIN [Suspect]
     Indication: REVERSIBLE ISCHAEMIC NEUROLOGICAL DEFICIT
     Dosage: DIVIDED DOSE FREQUENCY UNKNOWN
     Route: 048
     Dates: start: 20110111, end: 20110123
  2. PREDONINE [Concomitant]
     Indication: STILL'S DISEASE ADULT ONSET
     Dosage: DIVIDED DOSE FREQUENCY UNKNOWN
     Route: 048
     Dates: start: 20101217, end: 20101219
  3. PREDONINE [Concomitant]
     Dosage: DIVIDED DOSE FREQUENCY UNKNOWN
     Route: 048
     Dates: start: 20110110, end: 20110112
  4. PREDONINE [Concomitant]
     Dosage: DIVIDED DOSE FREQUENCY UNKNOWN
     Route: 048
     Dates: start: 20110119, end: 20110121
  5. LIPITOR [Suspect]
     Indication: HYPERLIPIDAEMIA
     Dosage: DIVIDED DOSE FREQUENCY UNKNOWN
     Route: 048
     Dates: start: 20101228, end: 20110123
  6. PREDONINE [Concomitant]
     Dosage: DIVIDED DOSE FREQUENCY UNKNOWN
     Route: 048
     Dates: start: 20110107, end: 20110109
  7. FOSAMAX [Suspect]
     Indication: OSTEOPOROSIS
     Route: 048
     Dates: start: 20101224, end: 20110125
  8. PREDONINE [Concomitant]
     Dosage: DIVIDED DOSE FREQUENCY UNKNOWN
     Route: 042
     Dates: start: 20101220, end: 20110103
  9. TAKEPRON [Suspect]
     Indication: REFLUX OESOPHAGITIS
     Dosage: DIVIDED DOSE FREQUENCY UNKNOWN
     Route: 048
     Dates: start: 20101224, end: 20110124
  10. PREDONINE [Concomitant]
     Dosage: DIVIDED DOSE FREQUENCY UNKNOWN
     Route: 042
     Dates: start: 20110104, end: 20110106
  11. BENAMBAX [Suspect]
     Indication: ANTIFUNGAL PROPHYLAXIS
     Dosage: DAILY DOSAGE UNKNOWN
     Route: 055
     Dates: start: 20101228, end: 20101228
  12. PREDONINE [Concomitant]
     Dosage: DIVIDED DOSE FREQUENCY UNKNOWN
     Route: 048
     Dates: start: 20110122, end: 20110202
  13. FUNGIZONE [Concomitant]
     Indication: ORAL CANDIDIASIS
     Dosage: DIVIDED DOSE FREQUENCY UNKNOWN
     Route: 048
     Dates: start: 20101227
  14. PREDONINE [Concomitant]
     Dosage: DIVIDED DOSE FREQUENCY UNKNOWN
     Route: 048
     Dates: start: 20110113, end: 20110115
  15. PREDONINE [Concomitant]
     Dosage: DIVIDED DOSE FREQUENCY UNKNOWN
     Route: 048
     Dates: start: 20110116, end: 20110118

REACTIONS (1)
  - AGRANULOCYTOSIS [None]
